FAERS Safety Report 9989248 (Version 1)
Quarter: 2013Q4

REPORT INFORMATION
  Report Type: Spontaneous
  Country: DE (occurrence: None)
  Receive Date: 20131023
  Receipt Date: 20131023
  Transmission Date: 20140711
  Serious: Yes (Death)
  Sender: FDA-Public Use
  Company Number: 2013038274

PATIENT
  Age: 56 Year
  Sex: Female

DRUGS (3)
  1. PRIVIGEN [Suspect]
     Indication: ACUTE MYELOID LEUKAEMIA
     Dosage: INFUSION RATE:MIN 0.32 MAX 2.13 ML/MIN
     Route: 042
     Dates: start: 20120505
  2. OTHER ANTIMYCOTICS FOR SYSTEMIC USE (OTHER ANTIMYCOTICS FOR SYSTEMIC USE) [Concomitant]
  3. ANTIVIRALS FOR SYSTEMIC USE (ANTIVIRALS FOR SYSTEMIC USE) [Concomitant]

REACTIONS (4)
  - Acute myeloid leukaemia recurrent [None]
  - Leukaemia recurrent [None]
  - BK virus infection [None]
  - Urinary tract infection viral [None]
